FAERS Safety Report 5245806-4 (Version None)
Quarter: 2007Q1

REPORT INFORMATION
  Report Type: 
  Country: None (occurrence: None)
  Receive Date: 20070216
  Receipt Date: 20070208
  Transmission Date: 20070707
  Serious: Yes (Other)
  Sender: FDA-Public Use
  Company Number: CIP07000279

PATIENT
  Age: 72 Year
  Sex: Female

DRUGS (1)
  1. ACTONEL [Suspect]
     Indication: OSTEOPOROSIS
     Dosage: 35 MG ONCE WEEKLY, ORAL
     Route: 048
     Dates: start: 20070117, end: 20070124

REACTIONS (5)
  - BLINDNESS UNILATERAL [None]
  - EYE DISORDER [None]
  - EYE PAIN [None]
  - HEADACHE [None]
  - IRITIS [None]
